FAERS Safety Report 8470307-X (Version None)
Quarter: 2012Q2

REPORT INFORMATION
  Report Type: 
  Country: None (occurrence: None)
  Receive Date: 20120627
  Receipt Date: 20120621
  Transmission Date: 20120825
  Serious: No
  Sender: FDA-Public Use
  Company Number: US-PFIZER INC-2012130602

PATIENT
  Sex: Female

DRUGS (3)
  1. CITRATE MAGNESIA [Suspect]
     Dosage: UNK
  2. SANDOSTATIN [Suspect]
     Dosage: UNK
  3. SOMAVERT [Suspect]
     Dosage: UNK

REACTIONS (7)
  - CONSTIPATION [None]
  - NAUSEA [None]
  - ANAL FISSURE [None]
  - VOMITING [None]
  - HAEMORRHOIDS [None]
  - DYSPEPSIA [None]
  - MALAISE [None]
